FAERS Safety Report 17990689 (Version 1)
Quarter: 2020Q3

REPORT INFORMATION
  Report Type: Report from Study
  Country: GB (occurrence: GB)
  Receive Date: 20200707
  Receipt Date: 20200707
  Transmission Date: 20201103
  Serious: Yes (Life-Threatening, Hospitalization, Other)
  Sender: FDA-Public Use
  Company Number: GB-ASTELLAS-2020US022928

PATIENT
  Age: 68 Year

DRUGS (1)
  1. ADENOSINE. [Suspect]
     Active Substance: ADENOSINE
     Indication: FRACTIONAL FLOW RESERVE
     Dosage: 0.84 MG/KG/MIN, UNKNOWN FREQ.
     Route: 042

REACTIONS (3)
  - Bronchospasm [Unknown]
  - Respiratory arrest [Unknown]
  - Product use in unapproved indication [Unknown]
